FAERS Safety Report 7528321-4 (Version None)
Quarter: 2011Q2

REPORT INFORMATION
  Report Type: 
  Country: None (occurrence: None)
  Receive Date: 20110607
  Receipt Date: 20110530
  Transmission Date: 20111010
  Serious: Yes (Other)
  Sender: FDA-Public Use
  Company Number: AT-US-EMD SERONO, INC.-7062132

PATIENT
  Sex: Female
  Weight: 17 kg

DRUGS (2)
  1. SAIZEN [Suspect]
     Dates: start: 20100101, end: 20110509
  2. SAIZEN [Suspect]
     Indication: GROWTH HORMONE DEFICIENCY
     Dates: start: 20080301, end: 20090601

REACTIONS (1)
  - OSTEOCHONDROSIS [None]
